FAERS Safety Report 8473917-9 (Version None)
Quarter: 2012Q2

REPORT INFORMATION
  Report Type: 
  Country: None (occurrence: None)
  Receive Date: 20120628
  Receipt Date: 20120229
  Transmission Date: 20120825
  Serious: Yes (Life-Threatening, Other)
  Sender: FDA-Public Use
  Company Number: US-MYLANLABS-2012S1002463

PATIENT
  Age: 21 Year
  Sex: Male

DRUGS (1)
  1. CLOZAPINE [Suspect]
     Indication: SCHIZOAFFECTIVE DISORDER
     Dates: end: 20111201

REACTIONS (3)
  - NEUTROPENIA [None]
  - WHITE BLOOD CELL COUNT DECREASED [None]
  - AGRANULOCYTOSIS [None]
